FAERS Safety Report 17797859 (Version 1)
Quarter: 2020Q2

REPORT INFORMATION
  Report Type: Spontaneous
  Country: US (occurrence: US)
  Receive Date: 20200518
  Receipt Date: 20200518
  Transmission Date: 20200714
  Serious: No
  Sender: FDA-Public Use
  Company Number: US-PFIZER INC-2016105125

PATIENT
  Age: 60 Year
  Sex: Male
  Weight: 102.04 kg

DRUGS (1)
  1. VIAGRA [Suspect]
     Active Substance: SILDENAFIL CITRATE
     Dosage: UNK, AS NEEDED (SIG: 1/2 TO 1 QDAY PRN (AS NEEDED))
     Route: 048
     Dates: start: 20180814

REACTIONS (2)
  - Dysgraphia [Unknown]
  - Hypoaesthesia [Unknown]
